FAERS Safety Report 15130743 (Version 2)
Quarter: 2018Q3

REPORT INFORMATION
  Report Type: Report from Study
  Country: US (occurrence: US)
  Receive Date: 20180711
  Receipt Date: 20180907
  Transmission Date: 20181010
  Serious: Yes (Hospitalization, Disabling, Other)
  Sender: FDA-Public Use
  Company Number: US-SA-2017SA065163

PATIENT
  Age: 40 Year
  Sex: Female

DRUGS (3)
  1. ALEMTUZUMAB [Suspect]
     Active Substance: ALEMTUZUMAB
     Indication: MULTIPLE SCLEROSIS
     Dosage: 12 MG, QD
     Route: 041
     Dates: start: 20160328, end: 20160401
  2. ALEMTUZUMAB [Suspect]
     Active Substance: ALEMTUZUMAB
     Dosage: 12 MG,QD
     Route: 041
     Dates: start: 20170502, end: 20170504
  3. VITAMIN D [Concomitant]
     Active Substance: CHOLECALCIFEROL

REACTIONS (20)
  - Muscle spasticity [Not Recovered/Not Resolved]
  - Nephrolithiasis [Recovered/Resolved]
  - Blood cholesterol increased [Not Recovered/Not Resolved]
  - Memory impairment [Not Recovered/Not Resolved]
  - Blood pressure increased [Unknown]
  - Poor venous access [Unknown]
  - Pain [Not Recovered/Not Resolved]
  - Walking disability [Recovered/Resolved]
  - Urinary tract infection [Unknown]
  - Temperature intolerance [Not Recovered/Not Resolved]
  - Multiple sclerosis [Not Recovered/Not Resolved]
  - Nuclear magnetic resonance imaging abnormal [Unknown]
  - Intervertebral disc protrusion [Not Recovered/Not Resolved]
  - Muscle spasms [Unknown]
  - Fatigue [Unknown]
  - Infusion site bruising [Not Recovered/Not Resolved]
  - Hypoaesthesia [Recovered/Resolved]
  - Agitation [Unknown]
  - White blood cell count decreased [Not Recovered/Not Resolved]
  - Back pain [Unknown]

NARRATIVE: CASE EVENT DATE: 20170407
